FAERS Safety Report 5369414-X (Version None)
Quarter: 2007Q2

REPORT INFORMATION
  Report Type: 
  Country: None (occurrence: None)
  Receive Date: 20070625
  Receipt Date: 20070419
  Transmission Date: 20071010
  Serious: No
  Sender: FDA-Public Use
  Company Number: US-ASTRAZENECA-2007UW07773

PATIENT
  Age: 54 Year
  Sex: Female
  Weight: 83 kg

DRUGS (3)
  1. CRESTOR [Suspect]
     Route: 048
  2. PREMARIN [Concomitant]
  3. ACIPHEX [Concomitant]

REACTIONS (1)
  - GASTROOESOPHAGEAL REFLUX DISEASE [None]
